FAERS Safety Report 4525133-0 (Version None)
Quarter: 2005Q1

REPORT INFORMATION
  Report Type: 
  Country: None (occurrence: None)
  Receive Date: 20041116
  Receipt Date: 20040720
  Transmission Date: 20050727
  Serious: No
  Sender: FDA-Public Use
  Company Number: S04-USA-04881-01

PATIENT
  Age: 80 Year
  Sex: Male

DRUGS (6)
  1. NAMENDA [Suspect]
     Indication: DEMENTIA ALZHEIMER'S TYPE
     Dosage: 10 MG QD PO
     Route: 048
     Dates: start: 20040408, end: 20040414
  2. NAMENDA [Suspect]
     Indication: DEMENTIA ALZHEIMER'S TYPE
     Dosage: 5 MG QD PO
     Route: 048
     Dates: start: 20040401, end: 20040407
  3. CELEBREX [Concomitant]
  4. MELLARIL [Concomitant]
  5. CELEXA [Concomitant]
  6. ARICEPT [Concomitant]

REACTIONS (3)
  - CONFUSIONAL STATE [None]
  - DIFFICULTY IN WALKING [None]
  - FALL [None]
